FAERS Safety Report 18238779 (Version 3)
Quarter: 2020Q3

REPORT INFORMATION
  Report Type: Report from Study
  Country: US (occurrence: US)
  Receive Date: 20200907
  Receipt Date: 20200918
  Transmission Date: 20201103
  Serious: Yes (Hospitalization, Other)
  Sender: FDA-Public Use
  Company Number: US-JNJFOC-A-US2020-208456

PATIENT
  Age: 30 Year
  Sex: Female
  Weight: 104.42 kg

DRUGS (4)
  1. TREPROSTINIL. [Suspect]
     Active Substance: TREPROSTINIL
     Indication: PRODUCT USED FOR UNKNOWN INDICATION
     Route: 042
  2. ADCIRCA [Concomitant]
     Active Substance: TADALAFIL
     Dosage: UNK
  3. TADALAFIL. [Concomitant]
     Active Substance: TADALAFIL
  4. OPSUMIT [Suspect]
     Active Substance: MACITENTAN
     Indication: PULMONARY ARTERIAL HYPERTENSION
     Dosage: 10 MG, QD
     Route: 048
     Dates: start: 20200808

REACTIONS (14)
  - Dermatitis contact [Unknown]
  - Blister [Unknown]
  - Catheter site erythema [Unknown]
  - Swelling [Unknown]
  - Pruritus [Recovering/Resolving]
  - Rash [Unknown]
  - Device related infection [Not Recovered/Not Resolved]
  - Pain [Unknown]
  - Skin irritation [Unknown]
  - Fluid retention [Recovering/Resolving]
  - Catheter site discharge [Unknown]
  - Cough [Recovering/Resolving]
  - Infusion site vesicles [Unknown]
  - Infusion site swelling [Unknown]

NARRATIVE: CASE EVENT DATE: 20200817
